FAERS Safety Report 18324479 (Version 2)
Quarter: 2020Q4

REPORT INFORMATION
  Report Type: Report from Study
  Country: US (occurrence: US)
  Receive Date: 20200929
  Receipt Date: 20201013
  Transmission Date: 20210113
  Serious: No
  Sender: FDA-Public Use
  Company Number: US-JAZZ-2020-US-012483

PATIENT
  Sex: Female

DRUGS (36)
  1. XYREM [Suspect]
     Active Substance: SODIUM OXYBATE
     Dosage: 4.5 GRAM, BID
     Route: 048
     Dates: start: 201605
  2. NALTREXONE [Concomitant]
     Active Substance: NALTREXONE
     Indication: PRODUCT USED FOR UNKNOWN INDICATION
     Dates: start: 20151103, end: 201703
  3. LORAZEPAM. [Concomitant]
     Active Substance: LORAZEPAM
     Indication: PRODUCT USED FOR UNKNOWN INDICATION
     Dates: end: 202002
  4. MAXALT [Concomitant]
     Active Substance: RIZATRIPTAN BENZOATE
     Indication: PRODUCT USED FOR UNKNOWN INDICATION
  5. XYREM [Suspect]
     Active Substance: SODIUM OXYBATE
     Indication: NARCOLEPSY
     Dosage: 2.25 GRAM, BID
     Route: 048
     Dates: start: 201604, end: 201604
  6. PERCOCET [Concomitant]
     Active Substance: ACETAMINOPHEN\OXYCODONE HYDROCHLORIDE
     Indication: PRODUCT USED FOR UNKNOWN INDICATION
     Dates: start: 20171226, end: 202002
  7. MUPIROCIN. [Concomitant]
     Active Substance: MUPIROCIN
     Dosage: 2 PERCENT OINTMENT
     Dates: start: 20160413, end: 201803
  8. LYRICA [Concomitant]
     Active Substance: PREGABALIN
     Indication: PRODUCT USED FOR UNKNOWN INDICATION
     Dates: start: 20150803
  9. NEXIUM I.V. [Concomitant]
     Active Substance: ESOMEPRAZOLE SODIUM
     Indication: PRODUCT USED FOR UNKNOWN INDICATION
     Dates: start: 20150630
  10. PRAZOSIN. [Concomitant]
     Active Substance: PRAZOSIN
     Indication: PRODUCT USED FOR UNKNOWN INDICATION
     Dates: start: 20150630
  11. PROVIGIL [Concomitant]
     Active Substance: MODAFINIL
     Indication: PRODUCT USED FOR UNKNOWN INDICATION
     Dates: start: 202006
  12. KETAMINE HCL [Concomitant]
     Active Substance: KETAMINE HYDROCHLORIDE
     Indication: PRODUCT USED FOR UNKNOWN INDICATION
     Dates: start: 201808, end: 2018
  13. TIZANIDINE HCL [Concomitant]
     Active Substance: TIZANIDINE HYDROCHLORIDE
     Indication: PRODUCT USED FOR UNKNOWN INDICATION
     Dates: start: 201808, end: 2018
  14. MORPHINE SULFATE. [Concomitant]
     Active Substance: MORPHINE SULFATE
     Indication: PRODUCT USED FOR UNKNOWN INDICATION
     Dates: start: 201708, end: 202002
  15. BIOTIN [Concomitant]
     Active Substance: BIOTIN
     Indication: PRODUCT USED FOR UNKNOWN INDICATION
     Dates: start: 20160202
  16. AMANTADINE. [Concomitant]
     Active Substance: AMANTADINE HYDROCHLORIDE
     Indication: PRODUCT USED FOR UNKNOWN INDICATION
     Dates: start: 201601
  17. LOSARTAN POTASSIUM. [Concomitant]
     Active Substance: LOSARTAN POTASSIUM
     Indication: PRODUCT USED FOR UNKNOWN INDICATION
     Dates: start: 20160104
  18. ZOLPIDEM [Concomitant]
     Active Substance: ZOLPIDEM TARTRATE
     Indication: PRODUCT USED FOR UNKNOWN INDICATION
     Dates: end: 201604
  19. PLAQUENIL [Concomitant]
     Active Substance: HYDROXYCHLOROQUINE SULFATE
     Indication: PRODUCT USED FOR UNKNOWN INDICATION
     Dates: start: 202006
  20. CELECOXIB. [Concomitant]
     Active Substance: CELECOXIB
     Indication: PRODUCT USED FOR UNKNOWN INDICATION
     Dates: start: 20151221
  21. PROMETHAZINE [Concomitant]
     Active Substance: PROMETHAZINE HYDROCHLORIDE
     Indication: PRODUCT USED FOR UNKNOWN INDICATION
     Dates: start: 201803, end: 2018
  22. METHOCARBAMOL. [Concomitant]
     Active Substance: METHOCARBAMOL
     Indication: PRODUCT USED FOR UNKNOWN INDICATION
     Dates: start: 20160113, end: 20170927
  23. ADDERALL [Concomitant]
     Active Substance: AMPHETAMINE ASPARTATE\AMPHETAMINE SULFATE\DEXTROAMPHETAMINE SACCHARATE\DEXTROAMPHETAMINE SULFATE
     Indication: PRODUCT USED FOR UNKNOWN INDICATION
     Dates: start: 20160303, end: 202002
  24. CYTOMEL [Concomitant]
     Active Substance: LIOTHYRONINE SODIUM
     Indication: PRODUCT USED FOR UNKNOWN INDICATION
     Dates: start: 20160202
  25. EVZIO [Concomitant]
     Active Substance: NALOXONE HYDROCHLORIDE
     Indication: PRODUCT USED FOR UNKNOWN INDICATION
  26. OXYCODONE HYDROCHLORIDE. [Concomitant]
     Active Substance: OXYCODONE HYDROCHLORIDE
     Indication: PRODUCT USED FOR UNKNOWN INDICATION
     Dates: end: 20180924
  27. XYREM [Suspect]
     Active Substance: SODIUM OXYBATE
     Indication: CATAPLEXY
     Dosage: DOSE ADJUSTMENT
     Route: 048
     Dates: start: 201604, end: 201605
  28. CLORAZEPATE [Concomitant]
     Active Substance: CLORAZEPATE DIPOTASSIUM
     Indication: PRODUCT USED FOR UNKNOWN INDICATION
     Dates: start: 201702, end: 201806
  29. TRAZODONE [Concomitant]
     Active Substance: TRAZODONE HYDROCHLORIDE
     Indication: PRODUCT USED FOR UNKNOWN INDICATION
     Dates: start: 20151222, end: 201605
  30. ATIVAN [Concomitant]
     Active Substance: LORAZEPAM
     Indication: PRODUCT USED FOR UNKNOWN INDICATION
     Dates: end: 201702
  31. KETOROLAC [Concomitant]
     Active Substance: KETOROLAC TROMETHAMINE
     Indication: PRODUCT USED FOR UNKNOWN INDICATION
     Dates: end: 202003
  32. DIAZEPAM. [Concomitant]
     Active Substance: DIAZEPAM
     Indication: PRODUCT USED FOR UNKNOWN INDICATION
     Dates: start: 201804, end: 2018
  33. MUPIROCIN. [Concomitant]
     Active Substance: MUPIROCIN
     Indication: PRODUCT USED FOR UNKNOWN INDICATION
     Dates: start: 201612, end: 201707
  34. ESTRADIOL. [Concomitant]
     Active Substance: ESTRADIOL
     Indication: PRODUCT USED FOR UNKNOWN INDICATION
     Dates: start: 20160104
  35. CYMBALTA [Concomitant]
     Active Substance: DULOXETINE HYDROCHLORIDE
     Indication: PRODUCT USED FOR UNKNOWN INDICATION
     Dates: start: 20150630
  36. BUSPIRONE HCL [Concomitant]
     Active Substance: BUSPIRONE HYDROCHLORIDE
     Indication: PRODUCT USED FOR UNKNOWN INDICATION
     Dates: end: 202001

REACTIONS (1)
  - Weight decreased [Unknown]
